FAERS Safety Report 4404874-X (Version None)
Quarter: 2004Q2

REPORT INFORMATION
  Report Type: 
  Country: None (occurrence: None)
  Receive Date: 20040618
  Receipt Date: 20040422
  Transmission Date: 20050107
  Serious: No
  Sender: FDA-Public Use
  Company Number: NSADSS2003004783

PATIENT
  Age: 43 Year
  Sex: Female
  Weight: 57.6068 kg

DRUGS (3)
  1. ORTHO EVRA [Suspect]
     Indication: CONTRACEPTION
     Dosage: 1 DOSE(S), 3 IN 4 WEEK, TRANSDERMAL
     Route: 062
     Dates: start: 20020922
  2. LEVOXIL (LEVOTHYROXINE SODIUM) [Concomitant]
  3. ADVAIR (SERETIDE MITE) [Concomitant]

REACTIONS (5)
  - BREAST PAIN [None]
  - DYSPNOEA [None]
  - MUSCLE CRAMP [None]
  - PAIN [None]
  - SINUSITIS [None]
